FAERS Safety Report 23753269 (Version 1)
Quarter: 2024Q2

REPORT INFORMATION
  Report Type: Spontaneous
  Country: US (occurrence: US)
  Receive Date: 20240417
  Receipt Date: 20240417
  Transmission Date: 20240715
  Serious: No
  Sender: FDA-Public Use
  Company Number: US-PFIZER INC-202400087934

PATIENT
  Sex: Female

DRUGS (1)
  1. PAXLOVID [Suspect]
     Active Substance: NIRMATRELVIR\RITONAVIR
     Indication: COVID-19 treatment

REACTIONS (7)
  - Cardiac disorder [Unknown]
  - Dizziness [Unknown]
  - Hypertension [Unknown]
  - Pain in jaw [Unknown]
  - Pain in extremity [Unknown]
  - Diarrhoea [Unknown]
  - Taste disorder [Unknown]
